FAERS Safety Report 20547800 (Version 3)
Quarter: 2022Q2

REPORT INFORMATION
  Report Type: Spontaneous
  Country: ES (occurrence: ES)
  Receive Date: 20220303
  Receipt Date: 20220429
  Transmission Date: 20220721
  Serious: Yes (Hospitalization, Other)
  Sender: FDA-Public Use
  Company Number: None

PATIENT
  Age: 38 Year
  Sex: Male

DRUGS (5)
  1. LAMOTRIGINE [Suspect]
     Active Substance: LAMOTRIGINE
     Indication: Depressive symptom
     Dosage: 200 MG, QD
     Route: 065
  2. LAMOTRIGINE [Suspect]
     Active Substance: LAMOTRIGINE
     Indication: Depression
     Dosage: TITRATED FOR 6 WEEKS
     Route: 065
  3. EMTRICITABINE [Concomitant]
     Active Substance: EMTRICITABINE
     Indication: HIV infection
     Dosage: UNK
     Route: 065
  4. ASENAPINE [Concomitant]
     Active Substance: ASENAPINE
     Indication: Product used for unknown indication
     Dosage: 5 MG, QD
     Route: 065
  5. ASENAPINE [Concomitant]
     Active Substance: ASENAPINE
     Indication: Depression

REACTIONS (1)
  - Mania [Recovered/Resolved]
